FAERS Safety Report 22699765 (Version 3)
Quarter: 2024Q1

REPORT INFORMATION
  Report Type: Spontaneous
  Country: IT (occurrence: IT)
  Receive Date: 20230713
  Receipt Date: 20240219
  Transmission Date: 20240409
  Serious: Yes (Other)
  Sender: FDA-Public Use
  Company Number: IT-002147023-NVSC2023IT149092

PATIENT
  Age: 38 Year
  Sex: Female

DRUGS (3)
  1. LETROZOLE [Suspect]
     Active Substance: LETROZOLE
     Indication: Breast cancer
     Dosage: 2.5 MILLIGRAM, ONCE A DAY
     Route: 048
     Dates: start: 2022
  2. RIBOCICLIB [Suspect]
     Active Substance: RIBOCICLIB
     Indication: Breast cancer
     Dosage: 600 MILLIGRAM, ONCE A DAY
     Route: 048
     Dates: start: 2022
  3. Leuprorelina [Concomitant]
     Indication: Product used for unknown indication
     Dosage: 3.75 MILLIGRAM (EVERY 28 DAYS)
     Route: 030

REACTIONS (5)
  - Metastases to lymph nodes [Unknown]
  - Hot flush [Unknown]
  - Headache [Unknown]
  - Mood altered [Unknown]
  - Drug ineffective [Unknown]

NARRATIVE: CASE EVENT DATE: 20220101
